FAERS Safety Report 18863779 (Version 1)
Quarter: 2021Q1

REPORT INFORMATION
  Report Type: Spontaneous
  Country: CH (occurrence: CH)
  Receive Date: 20210208
  Receipt Date: 20210208
  Transmission Date: 20210420
  Serious: Yes (Hospitalization, Other)
  Sender: FDA-Public Use
  Company Number: CH-BAYER-2021-044364

PATIENT
  Age: 16 Year
  Sex: Female

DRUGS (8)
  1. CIPROXIN 500 MG [Suspect]
     Active Substance: CIPROFLOXACIN
     Indication: SUICIDAL IDEATION
     Dosage: 3.5 G, ONCE
     Route: 048
     Dates: start: 20160703, end: 20160703
  2. ASPIRIN. [Suspect]
     Active Substance: ASPIRIN
     Indication: SUICIDAL IDEATION
     Dosage: 4 G, ONCE
     Route: 048
     Dates: start: 20160703, end: 20160703
  3. STILNOX [Concomitant]
     Active Substance: ZOLPIDEM TARTRATE
     Dosage: 10 MG, PRN (1 TAB IN RESERVE)
     Route: 048
  4. DAFALGAN [Concomitant]
     Active Substance: ACETAMINOPHEN
     Dosage: 500 MG, PRN (1IN RESERVE MAX. 4 /24 H))
     Route: 048
  5. PSYCHOPAX [Concomitant]
     Active Substance: DIAZEPAM
     Dosage: 1 DF, PRN (DROPS IN RESERVE)
     Route: 048
  6. PARACETAMOL [Suspect]
     Active Substance: ACETAMINOPHEN
     Indication: SUICIDAL IDEATION
     Dosage: 8.5 G, ONCE
     Route: 048
     Dates: start: 20160703, end: 20160703
  7. FLUCTINE [Concomitant]
     Active Substance: FLUOXETINE HYDROCHLORIDE
     Dosage: 20 MG, OM (1?0?0?0)
     Route: 048
  8. VALVERDE ENTSPANNUNGS [Concomitant]
     Dosage: 1 DF, PRN (IN RESERVE 2 TAB, MAX. 6 / 24 H)
     Route: 048

REACTIONS (4)
  - Nausea [Recovered/Resolved]
  - Poisoning [Recovered/Resolved]
  - Hypersensitivity [Recovered/Resolved]
  - Vomiting [Recovered/Resolved]

NARRATIVE: CASE EVENT DATE: 20160703
